FAERS Safety Report 8545624-5 (Version None)
Quarter: 2012Q3

REPORT INFORMATION
  Report Type: 
  Country: None (occurrence: None)
  Receive Date: 20120727
  Receipt Date: 20120723
  Transmission Date: 20120928
  Serious: Yes (Death, Other)
  Sender: FDA-Public Use
  Company Number: GB-AMGEN-GBRSP2012046247

PATIENT
  Age: 85 Year
  Sex: Female

DRUGS (2)
  1. ROMIPLOSTIM [Suspect]
     Indication: MYELODYSPLASTIC SYNDROME
     Dosage: 1 MUG/KG, QWK
     Dates: start: 20110701
  2. ROMIPLOSTIM [Suspect]
     Dosage: 10 MUG/KG, QWK

REACTIONS (4)
  - VENTRICULAR FIBRILLATION [None]
  - LEUKAEMIA CUTIS [None]
  - ANAEMIA [None]
  - CARDIAC ARREST [None]
